FAERS Safety Report 9043978 (Version 1)
Quarter: 2013Q1

REPORT INFORMATION
  Report Type: Report from Study
  Country: US (occurrence: US)
  Receive Date: 20130130
  Receipt Date: 20130130
  Transmission Date: 20140127
  Serious: Yes (Hospitalization, Other)
  Sender: FDA-Public Use
  Company Number: US-ABBOTT-12P-163-0945073-00

PATIENT
  Age: 56 Year
  Sex: Female
  Weight: 55.39 kg

DRUGS (6)
  1. HUMIRA 40 MG/0.8 ML PEN [Suspect]
     Indication: RHEUMATOID ARTHRITIS
     Route: 058
     Dates: start: 20120514
  2. LEVOTHYROXINE [Concomitant]
     Indication: HYPOTHYROIDISM
  3. FOLIC ACID [Concomitant]
     Indication: VITAMIN SUPPLEMENTATION
  4. METHOTREXATE [Concomitant]
     Indication: RHEUMATOID ARTHRITIS
  5. TRAMADOL [Concomitant]
     Indication: PAIN
     Dates: start: 2010
  6. HYDROCODONE [Concomitant]
     Indication: PAIN
     Dates: start: 2010

REACTIONS (3)
  - Abdominal pain [Recovered/Resolved]
  - Pancreatitis acute [Recovered/Resolved with Sequelae]
  - Cholelithiasis [Recovered/Resolved]
